FAERS Safety Report 8659021 (Version 3)
Quarter: 2012Q4

REPORT INFORMATION
  Report Type: 
  Country: US (occurrence: US)
  Receive Date: 20120710
  Receipt Date: 20120910
  Transmission Date: 20130627
  Serious: Yes (Other)
  Sender: FDA-Public Use
  Company Number: US-ELI_LILLY_AND_COMPANY-US201207000248

PATIENT
  Age: 60 Year
  Sex: Female
  Weight: 140.59 kg

DRUGS (9)
  1. BYDUREON [Suspect]
     Indication: TYPE 2 DIABETES MELLITUS
     Dosage: 2 mg, weekly (1/W)
     Route: 058
     Dates: start: 20120625
  2. METFORMIN [Concomitant]
     Indication: TYPE 2 DIABETES MELLITUS
     Dosage: 500 mg, qd
     Route: 048
     Dates: end: 20120624
  3. METFORMIN [Concomitant]
     Dosage: 500 mg, bid
  4. GLIPIZIDE [Concomitant]
     Indication: TYPE 2 DIABETES MELLITUS
     Dosage: 10 mg, qd
     Route: 048
     Dates: end: 20120625
  5. GLIPIZIDE [Concomitant]
     Dosage: 10 mg, qd
     Route: 048
     Dates: start: 20120630
  6. GLIPIZIDE [Concomitant]
     Dosage: 10 mg, bid
  7. CARVEDILOL [Concomitant]
     Indication: HYPERTENSION
     Dosage: UNK
     Route: 048
  8. CAPTOPRIL [Concomitant]
     Indication: HYPERTENSION
     Dosage: UNK
     Route: 048
  9. LOVASTATIN [Concomitant]
     Indication: BLOOD CHOLESTEROL INCREASED
     Dosage: UNK
     Route: 048

REACTIONS (1)
  - Blood glucose increased [Unknown]
